FAERS Safety Report 4456188-X (Version None)
Quarter: 2004Q3

REPORT INFORMATION
  Report Type: 
  Country: None (occurrence: None)
  Receive Date: 20040920
  Receipt Date: 20040909
  Transmission Date: 20050211
  Serious: Yes (Life-Threatening, Hospitalization)
  Sender: FDA-Public Use
  Company Number: 200410834BVD

PATIENT
  Sex: Male
  Weight: 71 kg

DRUGS (1)
  1. AVELOX [Suspect]
     Indication: INFECTION
     Dosage: 400 MG, TOTAL DAILY; ORAL
     Route: 048
     Dates: start: 20040621, end: 20040623

REACTIONS (17)
  - ALANINE AMINOTRANSFERASE INCREASED [None]
  - ASPARTATE AMINOTRANSFERASE INCREASED [None]
  - ASTHENIA [None]
  - BLOOD LACTATE DEHYDROGENASE INCREASED [None]
  - BLOOD UREA INCREASED [None]
  - C-REACTIVE PROTEIN INCREASED [None]
  - EPISTAXIS [None]
  - GASTROINTESTINAL HAEMORRHAGE [None]
  - HAEMATURIA [None]
  - HAEMOGLOBIN DECREASED [None]
  - HEPATOMEGALY [None]
  - IDIOPATHIC THROMBOCYTOPENIC PURPURA [None]
  - LYMPHOCYTE COUNT DECREASED [None]
  - NEUTROPHIL COUNT INCREASED [None]
  - PETECHIAE [None]
  - PROTEIN URINE PRESENT [None]
  - RED BLOOD CELLS URINE POSITIVE [None]
